FAERS Safety Report 18032497 (Version 1)
Quarter: 2020Q3

REPORT INFORMATION
  Report Type: Spontaneous
  Country: US (occurrence: US)
  Receive Date: 20200716
  Receipt Date: 20200716
  Transmission Date: 20201103
  Serious: Yes (Other)
  Sender: FDA-Public Use
  Company Number: US-PFIZER INC-2020270438

PATIENT
  Age: 31 Year
  Sex: Male
  Weight: 158.76 kg

DRUGS (1)
  1. SOMAVERT [Suspect]
     Active Substance: PEGVISOMANT
     Indication: ACROMEGALY
     Dosage: 10 MG, 1X/DAY

REACTIONS (4)
  - Seizure [Unknown]
  - Anxiety [Unknown]
  - Depression [Unknown]
  - Cerebrovascular accident [Unknown]
